FAERS Safety Report 4672725-4 (Version None)
Quarter: 2005Q2

REPORT INFORMATION
  Report Type: 
  Country: None (occurrence: None)
  Receive Date: 20050524
  Receipt Date: 20040811
  Transmission Date: 20051028
  Serious: Yes (Other)
  Sender: FDA-Public Use
  Company Number: US-GLAXOSMITHKLINE-A0521819A

PATIENT
  Age: 93 Year
  Sex: Female

DRUGS (7)
  1. DIGIBIND [Suspect]
     Route: 042
     Dates: start: 20040809, end: 20040810
  2. DIGOXIN [Suspect]
  3. COUMADIN [Concomitant]
     Dosage: 2MG PER DAY
  4. NORVASC [Concomitant]
     Dosage: 10MG PER DAY
  5. COZAAR [Concomitant]
     Dosage: 100MG PER DAY
  6. SYNTHROID [Concomitant]
     Dosage: 100MCG PER DAY
  7. LASIX [Concomitant]
     Dosage: 50MG PER DAY
     Route: 042

REACTIONS (3)
  - CARDIOACTIVE DRUG LEVEL INCREASED [None]
  - DRUG INEFFECTIVE [None]
  - THERAPEUTIC AGENT TOXICITY [None]
